FAERS Safety Report 20499803 (Version 2)
Quarter: 2022Q1

REPORT INFORMATION
  Report Type: Report from Study
  Country: BR (occurrence: None)
  Receive Date: 20220222
  Receipt Date: 20220317
  Transmission Date: 20220423
  Serious: Yes (Hospitalization)
  Sender: FDA-Public Use
  Company Number: BR-ROCHE-3026334

PATIENT
  Age: 62 Year
  Sex: Male
  Weight: 89.8 kg

DRUGS (29)
  1. OCRELIZUMAB [Suspect]
     Active Substance: OCRELIZUMAB
     Indication: Progressive multiple sclerosis
     Dosage: ON 14/DEC/2021, SHE RECEIVED THE MOST RECENT DOSE OF OCRELIZUMAB PRIOR TO THIS AE ONSET
     Route: 042
     Dates: start: 20190221
  2. AVODART [Concomitant]
     Active Substance: DUTASTERIDE
     Indication: Benign prostatic hyperplasia
     Route: 048
     Dates: start: 201812, end: 201905
  3. SIMVASTATIN [Concomitant]
     Active Substance: SIMVASTATIN
     Indication: Dyslipidaemia
     Route: 048
     Dates: start: 2014
  4. ESCITALOPRAM [Concomitant]
     Active Substance: ESCITALOPRAM OXALATE
     Indication: Anxiety
     Route: 048
     Dates: start: 201703, end: 201905
  5. ESCITALOPRAM [Concomitant]
     Active Substance: ESCITALOPRAM OXALATE
     Route: 048
     Dates: start: 20200211, end: 202105
  6. DUTASTERIDE\TAMSULOSIN [Concomitant]
     Active Substance: DUTASTERIDE\TAMSULOSIN
     Dosage: 0.5 / 0.4 MG
     Route: 048
     Dates: start: 201905
  7. IVERMECTIN [Concomitant]
     Active Substance: IVERMECTIN
     Dosage: NEXT DOSE ON 15/JUL/2020
     Route: 048
     Dates: start: 20200707, end: 20200707
  8. ASTRAZENECA COVID-19 VACCINE [Concomitant]
     Active Substance: AZD-1222
     Dosage: FIRST DOSE
     Route: 030
     Dates: start: 20210424, end: 20210424
  9. DIOSMIN [Concomitant]
     Active Substance: DIOSMIN
     Indication: Peripheral venous disease
     Route: 048
     Dates: start: 20210123, end: 202104
  10. DIOSMIN [Concomitant]
     Active Substance: DIOSMIN
     Indication: Peripheral venous disease
     Route: 048
     Dates: start: 20210123, end: 202104
  11. CEFTRIAXONE [Concomitant]
     Active Substance: CEFTRIAXONE
     Indication: Pneumonia
     Route: 011
     Dates: start: 20210903, end: 20210906
  12. AZITHROMYCIN [Concomitant]
     Active Substance: AZITHROMYCIN
     Indication: Pneumonia
     Route: 048
     Dates: start: 20210903, end: 20210907
  13. ENOXAPARIN [Concomitant]
     Active Substance: ENOXAPARIN
     Indication: Pulmonary embolism
     Route: 058
     Dates: start: 20210904
  14. BACLOFEN [Concomitant]
     Active Substance: BACLOFEN
     Indication: Fatigue
     Route: 048
     Dates: start: 202106
  15. ENOXAPARIN SODIUM [Concomitant]
     Active Substance: ENOXAPARIN SODIUM
     Indication: Pneumonia
     Route: 058
     Dates: end: 20210907
  16. ENOXAPARIN SODIUM [Concomitant]
     Active Substance: ENOXAPARIN SODIUM
     Indication: Pulmonary embolism
  17. METAMIZOLE SODIUM [Concomitant]
     Active Substance: METAMIZOLE SODIUM
     Indication: Pneumonia
     Route: 042
     Dates: start: 20210903, end: 20210903
  18. METAMIZOLE SODIUM [Concomitant]
     Active Substance: METAMIZOLE SODIUM
     Indication: Pulmonary embolism
  19. KETOPROFEN [Concomitant]
     Active Substance: KETOPROFEN
     Indication: Pneumonia
     Route: 042
     Dates: start: 20210903, end: 20210903
  20. KETOPROFEN [Concomitant]
     Active Substance: KETOPROFEN
     Indication: Pulmonary embolism
  21. PANTOZOL [Concomitant]
     Active Substance: PANTOPRAZOLE SODIUM
     Indication: Pneumonia
     Route: 048
     Dates: start: 20210906, end: 20210907
  22. PANTOZOL [Concomitant]
     Active Substance: PANTOPRAZOLE SODIUM
     Indication: Pulmonary embolism
  23. CAPTOPRIL [Concomitant]
     Active Substance: CAPTOPRIL
     Indication: Pneumonia
     Route: 048
     Dates: start: 20210905, end: 20210905
  24. CAPTOPRIL [Concomitant]
     Active Substance: CAPTOPRIL
     Indication: Pulmonary embolism
  25. XARELTO [Concomitant]
     Active Substance: RIVAROXABAN
     Indication: Pulmonary embolism
     Route: 048
     Dates: start: 20210904
  26. XARELTO [Concomitant]
     Active Substance: RIVAROXABAN
     Indication: Deep vein thrombosis
  27. METHYLPREDNISOLONE [Concomitant]
     Active Substance: METHYLPREDNISOLONE
     Indication: Premedication
     Dosage: SUBSEQUENT DOSES ON: 07/MAR/2019, 22/AUG/2019, 30/JAN/2020,16/JUL/2020,23/DEC/2020, 18/JUN/2021,14/D
     Route: 042
     Dates: start: 20190221
  28. ALLEGRA [Concomitant]
     Active Substance: FEXOFENADINE HYDROCHLORIDE
     Indication: Premedication
     Dosage: SUBSEQUENT DOSES ON: 07/MAR/2019, 22/AUG/2019, 30/JAN/2020,16/JUL/2020,23/DEC/2020, 18/JUN/2021,14/D
     Route: 048
     Dates: start: 20190221
  29. METAMIZOLE [Concomitant]
     Active Substance: METAMIZOLE
     Indication: Premedication
     Dosage: G/2ML?SUBSEQUENT DOSES ON: 07/MAR/2019, 22/AUG/2019, 30/JAN/2020,16/JUL/2020,23/DEC/2020, 18/JUN/202
     Route: 042
     Dates: start: 20190221

REACTIONS (1)
  - COVID-19 [Recovering/Resolving]

NARRATIVE: CASE EVENT DATE: 20220125
